FAERS Safety Report 13160820 (Version 1)
Quarter: 2017Q1

REPORT INFORMATION
  Report Type: Other
  Country: MY (occurrence: MY)
  Receive Date: 20170130
  Receipt Date: 20170130
  Transmission Date: 20170428
  Serious: Yes (Hospitalization)
  Sender: FDA-Public Use
  Company Number: MY-ORCHID HEALTHCARE-1062486

PATIENT
  Age: 59 Year
  Sex: Male

DRUGS (5)
  1. OLANZAPINE. [Suspect]
     Active Substance: OLANZAPINE
     Indication: BIPOLAR DISORDER
     Route: 065
  2. CLOZAPINE. [Suspect]
     Active Substance: CLOZAPINE
     Route: 065
  3. CHLORPROMAZINE. [Suspect]
     Active Substance: CHLORPROMAZINE
     Route: 065
  4. CLONAZEPAM. [Suspect]
     Active Substance: CLONAZEPAM
     Route: 065
  5. TRIHEXYPHENIDYL HYDROCHLORIDE. [Suspect]
     Active Substance: TRIHEXYPHENIDYL HYDROCHLORIDE
     Route: 065

REACTIONS (9)
  - Subarachnoid haemorrhage [Recovered/Resolved]
  - Aggression [Recovered/Resolved]
  - Respiratory depression [Recovered/Resolved]
  - Parkinsonism [Recovering/Resolving]
  - Somnolence [Recovered/Resolved]
  - Catatonia [Recovered/Resolved]
  - Confusional state [Recovered/Resolved]
  - Head injury [Recovered/Resolved]
  - Lethargy [Recovered/Resolved]
